FAERS Safety Report 5417129-1 (Version None)
Quarter: 2007Q3

REPORT INFORMATION
  Report Type: 
  Country: None (occurrence: None)
  Receive Date: 20070814
  Receipt Date: 20070730
  Transmission Date: 20080115
  Serious: Yes (Hospitalization)
  Sender: FDA-Public Use
  Company Number: MPS1-10720

PATIENT
  Age: 46 Year
  Sex: Female
  Weight: 53.4 kg

DRUGS (1)
  1. ALDURAZYME [Suspect]
     Indication: MUCOPOLYSACCHARIDOSIS I
     Dosage: 63.8 MG Q2WKS IV
     Route: 042
     Dates: start: 20051107

REACTIONS (1)
  - CARPAL TUNNEL SYNDROME [None]
